FAERS Safety Report 9616799 (Version 1)
Quarter: 2013Q4

REPORT INFORMATION
  Report Type: Spontaneous
  Country: ES (occurrence: ES)
  Receive Date: 20131011
  Receipt Date: 20131011
  Transmission Date: 20140711
  Serious: Yes (Death, Hospitalization)
  Sender: FDA-Public Use
  Company Number: ES-ROXANE LABORATORIES, INC.-2013-RO-01633RO

PATIENT
  Age: 45 Year
  Sex: Male

DRUGS (12)
  1. OXYCODONE [Suspect]
     Indication: CANCER PAIN
  2. DEXAMETHASONE [Suspect]
     Indication: CANCER PAIN
     Dosage: 4 MG
  3. DIAZEPAM [Suspect]
     Indication: CANCER PAIN
     Dosage: 30 MG
  4. MORPHINE [Suspect]
     Indication: CANCER PAIN
  5. TRANSMUCOSAL FENTANYL CITRATE [Suspect]
     Indication: CANCER PAIN
     Route: 060
  6. FENTANYL TTS [Suspect]
     Indication: CANCER PAIN
     Route: 062
  7. CONTROLLED RELEASE OXYCODONE [Suspect]
     Indication: CANCER PAIN
     Dosage: 180 MG
  8. CONTROLLED RELEASE OXYCODONE [Suspect]
     Dosage: 120 MG
  9. GABAPENTIN [Suspect]
     Indication: CANCER PAIN
     Dosage: 1800 MG
  10. DEXKETOPROFEN/TROMETAMOL [Suspect]
     Indication: CANCER PAIN
     Dosage: 75 MG
  11. VENLAFAXINE [Suspect]
     Indication: CANCER PAIN
     Dosage: 75 MG
  12. ALPRAZOLAM [Suspect]
     Indication: DEPRESSION
     Route: 060

REACTIONS (4)
  - Oesophageal squamous cell carcinoma [Fatal]
  - Abnormal behaviour [Recovered/Resolved]
  - Drug dependence [Recovered/Resolved]
  - Intentional drug misuse [Recovered/Resolved]
